FAERS Safety Report 24325583 (Version 1)
Quarter: 2024Q3

REPORT INFORMATION
  Report Type: Report from Study
  Country: US (occurrence: US)
  Receive Date: 20240917
  Receipt Date: 20240917
  Transmission Date: 20241016
  Serious: Yes (Other)
  Sender: ABBVIE
  Company Number: US-ABBVIE-5922037

PATIENT
  Age: 65 Year
  Sex: Male

DRUGS (3)
  1. SKYRIZI [Suspect]
     Active Substance: RISANKIZUMAB-RZAA
     Indication: Psoriasis
     Dosage: DOSAGE: 150 MG/ML WEEK 0, FORM STRENGTH: 150MG/ML
     Route: 058
     Dates: start: 20230525, end: 20230525
  2. SKYRIZI [Suspect]
     Active Substance: RISANKIZUMAB-RZAA
     Dosage: DOSAGE: 150 MG/ML WEEK 4, FORM STRENGTH: 150MG/ML
     Route: 058
     Dates: start: 202306, end: 202306
  3. SKYRIZI [Suspect]
     Active Substance: RISANKIZUMAB-RZAA
     Dosage: DOSAGE: 150 MG/ML FORM STRENGTH: 150MG/ML
     Route: 058
     Dates: start: 202309

REACTIONS (1)
  - Prostatic disorder [Unknown]

NARRATIVE: CASE EVENT DATE: 20231201
